FAERS Safety Report 25432526 (Version 2)
Quarter: 2025Q3

REPORT INFORMATION
  Report Type: Report from Study
  Country: CA (occurrence: CA)
  Receive Date: 20250613
  Receipt Date: 20250702
  Transmission Date: 20251021
  Serious: Yes (Hospitalization, Other)
  Sender: SAMSUNG BIOEPIS
  Company Number: CA-SAMSUNG BIOEPIS-SB-2025-01605

PATIENT
  Age: 67 Year
  Sex: Female

DRUGS (43)
  1. RENFLEXIS [Suspect]
     Active Substance: INFLIXIMAB-ABDA
     Indication: Hidradenitis
     Route: 042
     Dates: start: 20241127
  2. RENFLEXIS [Suspect]
     Active Substance: INFLIXIMAB-ABDA
     Route: 042
     Dates: start: 20241127
  3. RENFLEXIS [Suspect]
     Active Substance: INFLIXIMAB-ABDA
     Route: 042
     Dates: end: 20250606
  4. ACETAMINOPHEN\CAFFEINE\CODEINE [Concomitant]
     Active Substance: ACETAMINOPHEN\CAFFEINE\CODEINE
     Indication: Product used for unknown indication
     Dosage: 300/15/30 MG, 1 OR 2 TABS EVERY 4 HOURS AS NEEDED; 1 TO 2 TABLETS AS NEEDED;
  5. DOMPERIDONE [Concomitant]
     Active Substance: DOMPERIDONE
     Indication: Product used for unknown indication
     Dosage: 1 TAB 3 TIMES A DAY;
  6. DOMPERIDONE [Concomitant]
     Active Substance: DOMPERIDONE
  7. ALBUTEROL [Concomitant]
     Active Substance: ALBUTEROL
     Indication: Product used for unknown indication
     Dosage: 100 MCG, 2 PUFFS EVERY 4 HOURS AS NEEDED;
  8. IPRATROPIUM [Concomitant]
     Active Substance: IPRATROPIUM
     Indication: Product used for unknown indication
     Dosage: 4 SPRAYS EACH NOSTRIL 4X DAY AS NEEDED;4 SPRAYS IN NOSTRIL AS NEEDED; IN EACH NOSTRIL FOUR TIMES AS
  9. PANTOPRAZOLE SODIUM [Concomitant]
     Active Substance: PANTOPRAZOLE SODIUM
     Indication: Product used for unknown indication
     Dosage: 1 TAB 2X DAY;
  10. DIGOXIN [Concomitant]
     Active Substance: DIGOXIN
     Indication: Product used for unknown indication
     Dosage: 1 TAB ONCE DAILY; 0.125 MG DAILY;
  11. LATANOPROST [Concomitant]
     Active Substance: LATANOPROST
     Indication: Product used for unknown indication
     Dosage: 1 TAB 3X DAY;
  12. LATANOPROST [Concomitant]
     Active Substance: LATANOPROST
     Dosage: 50 MCG IN EYE AT BED TIME;
     Route: 031
  13. LATANOPROST [Concomitant]
     Active Substance: LATANOPROST
  14. METFORMIN [Concomitant]
     Active Substance: METFORMIN HYDROCHLORIDE
     Indication: Product used for unknown indication
     Dosage: 2 TABS 2X DAY;
  15. METFORMIN [Concomitant]
     Active Substance: METFORMIN HYDROCHLORIDE
     Dosage: 500 MG TWICE DAILY;
  16. GLICLAZIDE [Concomitant]
     Active Substance: GLICLAZIDE
     Indication: Product used for unknown indication
     Dosage: 4 TABS 1 X DAY;
  17. GLICLAZIDE [Concomitant]
     Active Substance: GLICLAZIDE
     Dosage: 30 MG DAILY;
  18. GLICLAZIDE [Concomitant]
     Active Substance: GLICLAZIDE
  19. NITRO-DUR [Concomitant]
     Active Substance: NITROGLYCERIN
     Indication: Product used for unknown indication
     Dosage: 0.2 MG/HR PATCH, APPLY EVERY AM AND REMOVE AT BEDTIME;
  20. NITRO-DUR [Concomitant]
     Active Substance: NITROGLYCERIN
  21. OZEMPIC [Concomitant]
     Active Substance: SEMAGLUTIDE
     Indication: Product used for unknown indication
     Dosage: PEN, 1 MG/ML, 1X WEEK AS DIRECTED;
  22. NADOLOL [Concomitant]
     Active Substance: NADOLOL
     Indication: Product used for unknown indication
     Dosage: 1 AND HALF TABS 2X DAY;
  23. NADOLOL [Concomitant]
     Active Substance: NADOLOL
  24. NADOLOL [Concomitant]
     Active Substance: NADOLOL
  25. GABAPENTIN [Concomitant]
     Active Substance: GABAPENTIN
     Indication: Product used for unknown indication
     Dosage: 2 TABS 3 TIMES DAILY;
  26. HYDROXYZINE [Concomitant]
     Active Substance: HYDROXYZINE HYDROCHLORIDE
     Indication: Product used for unknown indication
     Dosage: 1 CAPSULE 4 X A DAY AS NEEDED;
  27. JARDIANCE [Concomitant]
     Active Substance: EMPAGLIFLOZIN
     Indication: Product used for unknown indication
  28. Lidodan [Concomitant]
     Indication: Product used for unknown indication
  29. DEPO-MEDROL [Concomitant]
     Active Substance: METHYLPREDNISOLONE ACETATE
     Indication: Product used for unknown indication
  30. APIXABAN [Concomitant]
     Active Substance: APIXABAN
     Indication: Product used for unknown indication
     Dosage: APIXABAN 5 MG 1 TAB 2X DAY;
  31. APIXABAN [Concomitant]
     Active Substance: APIXABAN
  32. FUROSEMIDE [Concomitant]
     Active Substance: FUROSEMIDE
     Indication: Product used for unknown indication
     Dosage: FUROSEMIDE 20 MG 1 TAB/DAY;
  33. DOXYCYCLINE [Concomitant]
     Active Substance: DOXYCYCLINE
     Indication: Product used for unknown indication
     Dosage: 100 MG 1 TAB/ 2XDAY;
  34. DIPHENHYDRAMINE [Concomitant]
     Active Substance: DIPHENHYDRAMINE
     Indication: Premedication
     Route: 042
  35. DIMENHYDRINATE [Concomitant]
     Active Substance: DIMENHYDRINATE
     Indication: Premedication
     Route: 042
  36. Actaminophen [Concomitant]
     Indication: Premedication
     Route: 048
  37. Clotriderm [Concomitant]
     Indication: Product used for unknown indication
     Dosage: AS NEEDED;
  38. FLUCONAZOLE [Concomitant]
     Active Substance: FLUCONAZOLE
     Indication: Product used for unknown indication
     Dosage: 3 TABS/DAY X 10 DAYS:
  39. PANTOPRAZOLE SODIUM [Concomitant]
     Active Substance: PANTOPRAZOLE SODIUM
     Indication: Product used for unknown indication
  40. MEDROL [Concomitant]
     Active Substance: METHYLPREDNISOLONE
     Indication: Product used for unknown indication
  41. CLOTRIMAZOLE [Concomitant]
     Active Substance: CLOTRIMAZOLE
     Indication: Product used for unknown indication
  42. ACETAMINOPHEN\CAFFEINE\CODEINE [Concomitant]
     Active Substance: ACETAMINOPHEN\CAFFEINE\CODEINE
     Indication: Product used for unknown indication
  43. SOLU-MEDROL [Concomitant]
     Active Substance: METHYLPREDNISOLONE SODIUM SUCCINATE
     Indication: Product used for unknown indication

REACTIONS (5)
  - Chest discomfort [Recovering/Resolving]
  - Infusion related reaction [Not Recovered/Not Resolved]
  - Cardiac arrest [Unknown]
  - Infusion related hypersensitivity reaction [Unknown]
  - Off label use [Unknown]

NARRATIVE: CASE EVENT DATE: 20250605
